FAERS Safety Report 16446295 (Version 2)
Quarter: 2019Q2

REPORT INFORMATION
  Report Type: Spontaneous
  Country: US (occurrence: US)
  Receive Date: 20190618
  Receipt Date: 20190625
  Transmission Date: 20190711
  Serious: Yes (Other)
  Sender: FDA-Public Use
  Company Number: US-ASTRAZENECA-2018SF14854

PATIENT
  Age: 27275 Day
  Sex: Female

DRUGS (48)
  1. NEXIUM [Suspect]
     Active Substance: ESOMEPRAZOLE MAGNESIUM
     Route: 048
     Dates: start: 20130213
  2. LASIX [Concomitant]
     Active Substance: FUROSEMIDE
  3. NOVOLOG [Concomitant]
     Active Substance: INSULIN ASPART
  4. DILTIAZEM. [Concomitant]
     Active Substance: DILTIAZEM
  5. ZYMAR [Concomitant]
     Active Substance: GATIFLOXACIN
  6. CRESTOR [Concomitant]
     Active Substance: ROSUVASTATIN CALCIUM
  7. COLACE [Concomitant]
     Active Substance: DOCUSATE SODIUM
  8. PLAVIX [Concomitant]
     Active Substance: CLOPIDOGREL BISULFATE
  9. HUMALOG [Concomitant]
     Active Substance: INSULIN LISPRO
  10. PULMICORT TURBUHALER [Concomitant]
     Active Substance: BUDESONIDE
  11. NEXIUM [Suspect]
     Active Substance: ESOMEPRAZOLE MAGNESIUM
     Route: 048
  12. NEXIUM [Suspect]
     Active Substance: ESOMEPRAZOLE MAGNESIUM
     Route: 048
     Dates: start: 20100129, end: 20140728
  13. NEXIUM [Suspect]
     Active Substance: ESOMEPRAZOLE MAGNESIUM
     Route: 048
     Dates: start: 20120209
  14. ZOCOR [Concomitant]
     Active Substance: SIMVASTATIN
  15. HYDROCHLOROTHIAZIDE. [Concomitant]
     Active Substance: HYDROCHLOROTHIAZIDE
  16. NITROGLYCERINE [Concomitant]
     Active Substance: NITROGLYCERIN
  17. BENZONATATE. [Concomitant]
     Active Substance: BENZONATATE
  18. PROTONIX [Suspect]
     Active Substance: PANTOPRAZOLE SODIUM
     Route: 065
  19. MORPHINE [Concomitant]
     Active Substance: MORPHINE
  20. CLOPIDOGREL [Concomitant]
     Active Substance: CLOPIDOGREL BISULFATE
  21. BRIMONIDINE [Concomitant]
     Active Substance: BRIMONIDINE TARTRATE
  22. XALATAN [Concomitant]
     Active Substance: LATANOPROST
  23. METOPROLOL. [Concomitant]
     Active Substance: METOPROLOL
  24. FLONASE [Concomitant]
     Active Substance: FLUTICASONE PROPIONATE
  25. COREG [Concomitant]
     Active Substance: CARVEDILOL
  26. INSULIN [Concomitant]
     Active Substance: INSULIN NOS
  27. XIBROM [Concomitant]
     Active Substance: BROMFENAC SODIUM
  28. DIGOXIN. [Concomitant]
     Active Substance: DIGOXIN
  29. NUCYNTA [Concomitant]
     Active Substance: TAPENTADOL HYDROCHLORIDE
  30. WARFARIN [Concomitant]
     Active Substance: WARFARIN
  31. CHOLECALCIFEROL [Concomitant]
     Active Substance: CHOLECALCIFEROL
  32. SEVELAMER [Concomitant]
     Active Substance: SEVELAMER
  33. ASPIRIN. [Concomitant]
     Active Substance: ASPIRIN
  34. LANTUS [Concomitant]
     Active Substance: INSULIN GLARGINE
  35. LEVAQUIN [Concomitant]
     Active Substance: LEVOFLOXACIN
  36. FUROSEMIDE. [Concomitant]
     Active Substance: FUROSEMIDE
  37. ALPHAGAN P [Concomitant]
     Active Substance: BRIMONIDINE TARTRATE
  38. WARFARIN [Concomitant]
     Active Substance: WARFARIN
  39. DUONEB [Concomitant]
     Active Substance: ALBUTEROL SULFATE\IPRATROPIUM BROMIDE
  40. SINGULAIR [Concomitant]
     Active Substance: MONTELUKAST SODIUM
  41. TYLENOL [Concomitant]
     Active Substance: ACETAMINOPHEN
  42. NEXIUM [Suspect]
     Active Substance: ESOMEPRAZOLE MAGNESIUM
     Route: 048
     Dates: start: 20101122
  43. PRILOSEC [Suspect]
     Active Substance: OMEPRAZOLE MAGNESIUM
     Route: 048
  44. ANGIOMAX [Concomitant]
     Active Substance: BIVALIRUDIN
  45. DORZOLAMIDE [Concomitant]
     Active Substance: DORZOLAMIDE
  46. PREDNISOLONE. [Concomitant]
     Active Substance: PREDNISOLONE
  47. SIMVASTATIN. [Concomitant]
     Active Substance: SIMVASTATIN
  48. HECTOROL [Concomitant]
     Active Substance: DOXERCALCIFEROL

REACTIONS (6)
  - Nephrogenic anaemia [Unknown]
  - Renal injury [Unknown]
  - Acute kidney injury [Unknown]
  - End stage renal disease [Unknown]
  - Renal failure [Unknown]
  - Chronic kidney disease [Unknown]

NARRATIVE: CASE EVENT DATE: 20161225
